FAERS Safety Report 8743107 (Version 2)
Quarter: 2013Q2

REPORT INFORMATION
  Report Type: Spontaneous
  Country: JP (occurrence: None)
  Receive Date: 20120803
  Receipt Date: 20130405
  Transmission Date: 20140414
  Serious: Yes (Death)
  Sender: FDA-Public Use
  Company Number: MPS1-1000744

PATIENT
  Age: 62 Year
  Sex: Male

DRUGS (7)
  1. ALDURAZYME [Suspect]
     Indication: MUCOPOLYSACCHARIDOSIS I
     Dosage: INTRAVENOUS
     Route: 042
     Dates: start: 20070219, end: 20110418
  2. DIGOXIN (DIGOXIN) [Concomitant]
  3. WARFARIN POTASSIUM (WARFARIN POTASSIUM) [Concomitant]
  4. BENZBROMARONE (BENZBROMARONE) [Concomitant]
  5. TEPRENONE(TEPRENONE) [Concomitant]
  6. FUROSEMIDE (FUROSEMIDE) [Concomitant]
  7. SODIUM FERROUS CITRATE [Concomitant]

REACTIONS (3)
  - Sepsis [None]
  - Pneumonia aspiration [None]
  - Accidental death [None]
